FAERS Safety Report 8105392-8 (Version None)
Quarter: 2012Q1

REPORT INFORMATION
  Report Type: 
  Country: None (occurrence: None)
  Receive Date: 20120201
  Receipt Date: 20120125
  Transmission Date: 20120608
  Serious: Yes (Hospitalization)
  Sender: FDA-Public Use
  Company Number: FR-BAYER-2012-008530

PATIENT
  Age: 52 Year
  Sex: Male

DRUGS (3)
  1. BISEPTINE [Suspect]
     Indication: WOUND INFECTION
     Dosage: 1 DF, QD
     Route: 003
     Dates: start: 20111003, end: 20111010
  2. IALUSET [Suspect]
     Indication: WOUND INFECTION
     Dosage: 1 DF, QD
     Route: 003
     Dates: start: 20111003, end: 20111010
  3. ORBENIN CAP [Suspect]
     Indication: WOUND INFECTION
     Dosage: 1 DF, BID
     Route: 048
     Dates: start: 20111003, end: 20111010

REACTIONS (2)
  - PHOTOSENSITIVITY REACTION [None]
  - DERMATITIS BULLOUS [None]
